FAERS Safety Report 5962597-X (Version None)
Quarter: 2008Q4

REPORT INFORMATION
  Report Type: 
  Country: None (occurrence: None)
  Receive Date: 20081121
  Receipt Date: 20081112
  Transmission Date: 20090506
  Serious: Yes (Other)
  Sender: FDA-Public Use
  Company Number: US-PFIZER INC-2008096458

PATIENT
  Age: 45 Year
  Sex: Female

DRUGS (3)
  1. ZITHROMAX [Suspect]
     Indication: EAR INFECTION
  2. PLAVIX [Concomitant]
  3. ASPIRIN [Concomitant]

REACTIONS (1)
  - PROCTITIS ULCERATIVE [None]
